FAERS Safety Report 8304073-5 (Version None)
Quarter: 2012Q2

REPORT INFORMATION
  Report Type: 
  Country: None (occurrence: None)
  Receive Date: 20120423
  Receipt Date: 20120412
  Transmission Date: 20120825
  Serious: Yes (Life-Threatening)
  Sender: FDA-Public Use
  Company Number: TR-BRISTOL-MYERS SQUIBB COMPANY-16522294

PATIENT
  Age: 62 Year
  Sex: Female
  Weight: 47 kg

DRUGS (6)
  1. DEXAMETHASONE [Concomitant]
     Dosage: 8MG/2ML AMPOULE
  2. CARBOPLATIN [Suspect]
     Route: 042
     Dates: start: 20120309
  3. KYTRIL [Concomitant]
     Dosage: 3MG/3ML AMPOULE
  4. TAXOL [Suspect]
     Route: 042
     Dates: start: 20120309
  5. CHLORPHENOXAMINE HCL [Concomitant]
     Dosage: 10MG/ML - 1 AMPOULE
  6. RANITIDINE HCL [Concomitant]
     Dosage: 50MG/2ML

REACTIONS (1)
  - SYNCOPE [None]
